FAERS Safety Report 23084447 (Version 1)
Quarter: 2023Q4

REPORT INFORMATION
  Report Type: Report from Study
  Country: BE (occurrence: BE)
  Receive Date: 20231019
  Receipt Date: 20231019
  Transmission Date: 20240109
  Serious: Yes (Other)
  Sender: FDA-Public Use
  Company Number: BE-UCBSA-2023049021

PATIENT

DRUGS (1)
  1. LEVETIRACETAM [Interacting]
     Active Substance: LEVETIRACETAM
     Indication: Product used for unknown indication
     Dosage: UNK

REACTIONS (3)
  - Cerebrovascular accident [Unknown]
  - Drug level decreased [Unknown]
  - Drug interaction [Unknown]
